FAERS Safety Report 7748321-9 (Version None)
Quarter: 2011Q3

REPORT INFORMATION
  Report Type: 
  Country: None (occurrence: None)
  Receive Date: 20110913
  Receipt Date: 20110908
  Transmission Date: 20111222
  Serious: Yes (Other)
  Sender: FDA-Public Use
  Company Number: PHEH2011US03722

PATIENT
  Age: 54 Year
  Sex: Female

DRUGS (4)
  1. NEURONTIN [Concomitant]
     Dosage: UNK UKN, UNK
  2. CARBATROL [Concomitant]
     Dosage: UNK UKN, UNK
  3. GILENYA [Suspect]
     Indication: MULTIPLE SCLEROSIS
     Dosage: 0.5 MG, DAILY
     Route: 048
     Dates: start: 20110407
  4. WELLBUTRIN [Concomitant]
     Dosage: UNK UKN, UNK

REACTIONS (2)
  - HEART RATE ABNORMAL [None]
  - BLOOD PRESSURE FLUCTUATION [None]
